FAERS Safety Report 21191332 (Version 4)
Quarter: 2022Q3

REPORT INFORMATION
  Report Type: Spontaneous
  Country: MX (occurrence: CO)
  Receive Date: 20220809
  Receipt Date: 20220907
  Transmission Date: 20221026
  Serious: Yes (Hospitalization)
  Sender: FDA-Public Use
  Company Number: MX-BAYER-2022A109150

PATIENT
  Age: 30 Year
  Sex: Female

DRUGS (5)
  1. CIPRO [Suspect]
     Active Substance: CIPROFLOXACIN HYDROCHLORIDE
     Indication: Urinary tract infection bacterial
     Dosage: UNK
     Dates: start: 20220124, end: 20220131
  2. CIPRO [Suspect]
     Active Substance: CIPROFLOXACIN HYDROCHLORIDE
     Indication: Urinary tract infection bacterial
     Dosage: UNK
     Dates: start: 20220205, end: 20220208
  3. SCOPOLAMINE [Concomitant]
     Active Substance: SCOPOLAMINE
     Dosage: UNK
     Dates: start: 20220125, end: 20220128
  4. FLUCONAZOLE [Concomitant]
     Active Substance: FLUCONAZOLE
     Dosage: 500 MG, ONCE
     Dates: start: 20220208
  5. METRONIDAZOLE [Concomitant]
     Active Substance: METRONIDAZOLE
     Dosage: 500 MG, QD
     Dates: start: 20220211, end: 20220217

REACTIONS (68)
  - Joint noise [Not Recovered/Not Resolved]
  - Folliculitis [Not Recovered/Not Resolved]
  - Insomnia [Not Recovered/Not Resolved]
  - Feeling abnormal [Not Recovered/Not Resolved]
  - Generalised anxiety disorder [Not Recovered/Not Resolved]
  - Dyskinesia [Not Recovered/Not Resolved]
  - Muscle contractions involuntary [Not Recovered/Not Resolved]
  - Muscle atrophy [Not Recovered/Not Resolved]
  - Fatigue [Not Recovered/Not Resolved]
  - Aphthous ulcer [Not Recovered/Not Resolved]
  - Inflammation [Not Recovered/Not Resolved]
  - Loose tooth [Not Recovered/Not Resolved]
  - Menstrual disorder [Not Recovered/Not Resolved]
  - Rash [Not Recovered/Not Resolved]
  - Tongue discolouration [Not Recovered/Not Resolved]
  - Acne [Not Recovered/Not Resolved]
  - Tendon pain [Not Recovered/Not Resolved]
  - Visual impairment [Not Recovered/Not Resolved]
  - Abdominal pain [Not Recovered/Not Resolved]
  - Oedema peripheral [Not Recovered/Not Resolved]
  - Ear pain [Not Recovered/Not Resolved]
  - Spinal pain [Not Recovered/Not Resolved]
  - Delirium [Not Recovered/Not Resolved]
  - Gastrointestinal disorder [Not Recovered/Not Resolved]
  - Feeling abnormal [None]
  - Head discomfort [Not Recovered/Not Resolved]
  - Pharyngeal swelling [None]
  - Vertigo [None]
  - Night sweats [None]
  - Temperature regulation disorder [None]
  - Muscle tightness [None]
  - Facial pain [None]
  - Tremor [None]
  - Aptyalism [None]
  - Dysgeusia [None]
  - Myoclonus [None]
  - Oral herpes [None]
  - Peripheral sensory neuropathy [None]
  - Phlebitis [None]
  - Tinnitus [None]
  - Vitreous floaters [None]
  - Weight decreased [None]
  - Alopecia [None]
  - Lacrimation decreased [None]
  - Muscular weakness [None]
  - Bedridden [None]
  - Pain [None]
  - Palpitations [None]
  - Musculoskeletal stiffness [None]
  - Asthenia [None]
  - Dizziness [None]
  - Faeces discoloured [None]
  - Pain in extremity [None]
  - Abdominal distension [None]
  - Eye pain [None]
  - Back pain [None]
  - Pain in extremity [None]
  - Burning sensation [None]
  - Muscle spasms [None]
  - Nightmare [None]
  - Arthralgia [None]
  - Loss of personal independence in daily activities [None]
  - Rhinalgia [None]
  - Pain in extremity [None]
  - Arthralgia [None]
  - Wheelchair user [None]
  - Hypoaesthesia [Not Recovered/Not Resolved]
  - Abdominal pain upper [Not Recovered/Not Resolved]

NARRATIVE: CASE EVENT DATE: 20220126
